FAERS Safety Report 14617036 (Version 1)
Quarter: 2018Q1

REPORT INFORMATION
  Report Type: Spontaneous
  Country: CN (occurrence: CN)
  Receive Date: 20180309
  Receipt Date: 20180309
  Transmission Date: 20180509
  Serious: Yes (Hospitalization)
  Sender: FDA-Public Use
  Company Number: CN-BAYER-2018-037222

PATIENT
  Age: 51 Year
  Sex: Male

DRUGS (2)
  1. NEXAVAR [Suspect]
     Active Substance: SORAFENIB
     Dosage: 2 DF, BID
     Route: 048
  2. NEXAVAR [Suspect]
     Active Substance: SORAFENIB
     Dosage: UNK

REACTIONS (8)
  - Hypoaesthesia [None]
  - Laryngeal discomfort [None]
  - Yellow skin [Recovered/Resolved]
  - Pain of skin [Recovered/Resolved]
  - Gait disturbance [Recovered/Resolved]
  - Condition aggravated [None]
  - Oral discomfort [None]
  - Disease recurrence [None]

NARRATIVE: CASE EVENT DATE: 20180227
